FAERS Safety Report 17671285 (Version 1)
Quarter: 2020Q2

REPORT INFORMATION
  Report Type: Spontaneous
  Country: US (occurrence: US)
  Receive Date: 20200415
  Receipt Date: 20200415
  Transmission Date: 20200713
  Serious: No
  Sender: FDA-Public Use
  Company Number: US-CELGENEUS-USA-20200403304

PATIENT
  Age: 39 Year
  Sex: Female

DRUGS (2)
  1. OTEZLA [Suspect]
     Active Substance: APREMILAST
     Indication: PSORIASIS
     Dosage: UNKNOWN
     Route: 048
     Dates: start: 20200401, end: 20200403
  2. OTEZLA [Suspect]
     Active Substance: APREMILAST
     Indication: PSORIATIC ARTHROPATHY

REACTIONS (3)
  - Headache [Recovered/Resolved]
  - Back pain [Recovered/Resolved]
  - Chest discomfort [Recovered/Resolved]

NARRATIVE: CASE EVENT DATE: 20200401
